FAERS Safety Report 15001696 (Version 2)
Quarter: 2018Q4

REPORT INFORMATION
  Report Type: Spontaneous
  Country: US (occurrence: US)
  Receive Date: 20180612
  Receipt Date: 20181004
  Transmission Date: 20190204
  Serious: Yes (Hospitalization)
  Sender: FDA-Public Use
  Company Number: US-JNJFOC-20180611366

PATIENT
  Age: 43 Year
  Sex: Female
  Weight: 96.3 kg

DRUGS (1)
  1. INVOKANA [Suspect]
     Active Substance: CANAGLIFLOZIN
     Indication: TYPE 2 DIABETES MELLITUS
     Route: 048
     Dates: start: 20150406, end: 201710

REACTIONS (4)
  - Skin ulcer [Unknown]
  - Toe amputation [Unknown]
  - Osteomyelitis acute [Unknown]
  - Cellulitis [Unknown]

NARRATIVE: CASE EVENT DATE: 20171018
